FAERS Safety Report 9262018 (Version 2)
Quarter: 2013Q2

REPORT INFORMATION
  Report Type: Spontaneous
  Country: NO (occurrence: NO)
  Receive Date: 20130429
  Receipt Date: 20130430
  Transmission Date: 20140414
  Serious: Yes (Hospitalization)
  Sender: FDA-Public Use
  Company Number: NO-ABBOTT-13P-122-1078714-00

PATIENT
  Sex: Male

DRUGS (2)
  1. HUMIRA [Suspect]
     Indication: PRODUCT USED FOR UNKNOWN INDICATION
     Dates: start: 201105, end: 20130125
  2. IMUREL [Suspect]
     Indication: PRODUCT USED FOR UNKNOWN INDICATION
     Dates: start: 200911, end: 20130125

REACTIONS (24)
  - Tension headache [Unknown]
  - Meningitis listeria [Unknown]
  - Arthritis [Unknown]
  - Crohn^s disease [Unknown]
  - Headache [Unknown]
  - Vomiting [Unknown]
  - Diarrhoea [Unknown]
  - Decreased appetite [Unknown]
  - Poor quality sleep [Unknown]
  - Pyrexia [Unknown]
  - Chills [Unknown]
  - Night sweats [Unknown]
  - Musculoskeletal stiffness [Unknown]
  - Arthralgia [Unknown]
  - Joint swelling [Unknown]
  - Dependent rubor [Unknown]
  - Muscle tightness [Unknown]
  - Pain [Unknown]
  - Arthritis bacterial [Unknown]
  - Crohn^s disease [Unknown]
  - Synovitis [Unknown]
  - Sensory disturbance [Unknown]
  - Back pain [Unknown]
  - Pain [Unknown]
